FAERS Safety Report 18209163 (Version 1)
Quarter: 2020Q3

REPORT INFORMATION
  Report Type: Spontaneous
  Country: US (occurrence: US)
  Receive Date: 20200828
  Receipt Date: 20200828
  Transmission Date: 20201103
  Serious: No
  Sender: FDA-Public Use
  Company Number: US-SA-2020SA228060

PATIENT

DRUGS (2)
  1. ALLEGRA?D 24 HOUR [Suspect]
     Active Substance: FEXOFENADINE HYDROCHLORIDE\PSEUDOEPHEDRINE HYDROCHLORIDE
     Indication: NASAL CONGESTION
  2. ALLEGRA?D 24 HOUR [Suspect]
     Active Substance: FEXOFENADINE HYDROCHLORIDE\PSEUDOEPHEDRINE HYDROCHLORIDE
     Indication: HYPERSENSITIVITY
     Dosage: UNK UNK, QD,DRUG STRUCTURE DOSAGE : 180 MG/240 MG DRUG INTERVAL DOSAGE : ONCE DAILY
     Route: 065
     Dates: start: 20200810

REACTIONS (6)
  - Lethargy [Unknown]
  - Irritability [Unknown]
  - Somnolence [Unknown]
  - Nausea [Unknown]
  - Urticaria [Unknown]
  - Asthenia [Unknown]

NARRATIVE: CASE EVENT DATE: 20200825
